FAERS Safety Report 11656081 (Version 1)
Quarter: 2015Q4

REPORT INFORMATION
  Report Type: Spontaneous
  Country: US (occurrence: US)
  Receive Date: 20151023
  Receipt Date: 20151023
  Transmission Date: 20160304
  Serious: No
  Sender: FDA-Public Use
  Company Number: US-009507513-1510USA009918

PATIENT
  Age: 90 Year
  Sex: Female

DRUGS (3)
  1. NASOCORT [Concomitant]
     Active Substance: BUDESONIDE
     Dosage: UNK
  2. ASTELIN (AZELASTINE HYDROCHLORIDE) [Concomitant]
     Active Substance: AZELASTINE HYDROCHLORIDE
     Dosage: UNK
  3. NASONEX [Suspect]
     Active Substance: MOMETASONE FUROATE
     Indication: RHINITIS
     Dosage: 2 DF, QD
     Route: 045

REACTIONS (3)
  - Product use issue [Unknown]
  - Product distribution issue [Unknown]
  - Drug dose omission [Unknown]
